FAERS Safety Report 6381008-6 (Version None)
Quarter: 2009Q3

REPORT INFORMATION
  Report Type: 
  Country: None (occurrence: None)
  Receive Date: 20090929
  Receipt Date: 20090916
  Transmission Date: 20100115
  Serious: No
  Sender: FDA-Public Use
  Company Number: US-B.I. PHARMACEUTICALS,INC./RIDGEFIELD-2009-BP-11045BP

PATIENT
  Sex: Male

DRUGS (5)
  1. FLOMAX [Suspect]
     Indication: DYSURIA
     Dosage: 0.4 MG
     Route: 048
     Dates: start: 20090101, end: 20090901
  2. TOPROL-XL [Concomitant]
     Dates: start: 20090601
  3. ALLOPURINOL [Concomitant]
     Dates: start: 20090201
  4. FUROSEMIDE [Concomitant]
     Dates: start: 20090201
  5. TRAMADOL HCL [Concomitant]
     Dates: start: 20081201

REACTIONS (2)
  - URINARY RETENTION [None]
  - URINE OUTPUT DECREASED [None]
